FAERS Safety Report 21624483 (Version 3)
Quarter: 2023Q1

REPORT INFORMATION
  Report Type: Report from Study
  Country: US (occurrence: US)
  Receive Date: 20221121
  Receipt Date: 20230131
  Transmission Date: 20230418
  Serious: Yes (Hospitalization)
  Sender: FDA-Public Use
  Company Number: US-BIOGEN-2022BI01170448

PATIENT
  Age: 40 Year
  Sex: Female

DRUGS (12)
  1. TYSABRI [Suspect]
     Active Substance: NATALIZUMAB
     Indication: Multiple sclerosis
     Route: 050
     Dates: start: 20080908, end: 20150820
  2. TYSABRI [Suspect]
     Active Substance: NATALIZUMAB
     Route: 050
     Dates: start: 20151217
  3. TYSABRI [Suspect]
     Active Substance: NATALIZUMAB
     Route: 050
     Dates: start: 20080908, end: 20220908
  4. TECFIDERA [Suspect]
     Active Substance: DIMETHYL FUMARATE
     Indication: Product used for unknown indication
     Route: 050
  5. AMPYRA [Suspect]
     Active Substance: DALFAMPRIDINE
     Indication: Product used for unknown indication
     Route: 050
  6. BACLOFEN [Concomitant]
     Active Substance: BACLOFEN
     Indication: Product used for unknown indication
     Route: 050
  7. VITAMINS [Concomitant]
     Active Substance: VITAMINS
     Indication: Product used for unknown indication
     Route: 050
  8. METHYLPHENIDATE [Concomitant]
     Active Substance: METHYLPHENIDATE
     Indication: Product used for unknown indication
     Dosage: QD
     Route: 050
  9. VITAMIN D3 [Concomitant]
     Active Substance: CHOLECALCIFEROL
     Indication: Product used for unknown indication
     Dosage: 1000
     Route: 050
  10. XANAX [Concomitant]
     Active Substance: ALPRAZOLAM
     Indication: Panic attack
     Dosage: PRN
     Route: 050
  11. ACTHAR [Concomitant]
     Active Substance: CORTICOTROPIN
     Indication: Product used for unknown indication
     Route: 050
  12. VALTREX [Concomitant]
     Active Substance: VALACYCLOVIR HYDROCHLORIDE
     Indication: Product used for unknown indication
     Route: 050

REACTIONS (1)
  - Glioblastoma multiforme [Unknown]

NARRATIVE: CASE EVENT DATE: 20220718
